FAERS Safety Report 6390260-2 (Version None)
Quarter: 2009Q4

REPORT INFORMATION
  Report Type: 
  Country: None (occurrence: None)
  Receive Date: 20091006
  Receipt Date: 20090925
  Transmission Date: 20100525
  Serious: Yes (Hospitalization)
  Sender: FDA-Public Use
  Company Number: A0809188A

PATIENT
  Age: 40 Year
  Sex: Female

DRUGS (1)
  1. NICORETTE [Suspect]
     Indication: SMOKING CESSATION THERAPY
     Dosage: 25GUM PER DAY
     Route: 002
     Dates: start: 20050101, end: 20090101

REACTIONS (19)
  - ABDOMINAL PAIN UPPER [None]
  - AFFECT LABILITY [None]
  - AGITATION [None]
  - ANXIETY [None]
  - DECREASED APPETITE [None]
  - DIARRHOEA [None]
  - DISTURBANCE IN ATTENTION [None]
  - GASTRIC DISORDER [None]
  - HEADACHE [None]
  - HYPERVENTILATION [None]
  - HYPOACUSIS [None]
  - IMPULSIVE BEHAVIOUR [None]
  - INSOMNIA [None]
  - INTENTIONAL DRUG MISUSE [None]
  - MUSCULAR WEAKNESS [None]
  - NICOTINE DEPENDENCE [None]
  - OVERDOSE [None]
  - PALPITATIONS [None]
  - WITHDRAWAL SYNDROME [None]
